FAERS Safety Report 13376731 (Version 1)
Quarter: 2017Q1

REPORT INFORMATION
  Report Type: Spontaneous
  Country: IL (occurrence: IL)
  Receive Date: 20170328
  Receipt Date: 20170328
  Transmission Date: 20170429
  Serious: Yes (Life-Threatening, Other)
  Sender: FDA-Public Use
  Company Number: IL-GE HEALTHCARE LIFE SCIENCES-2017CSU000564

PATIENT

DRUGS (5)
  1. DIAZEPAM. [Concomitant]
     Active Substance: DIAZEPAM
     Dosage: 10 MG, UNK
     Route: 048
  2. NIFEDIPINE SR [Concomitant]
     Active Substance: NIFEDIPINE
     Dosage: 30 MG, UNK
  3. HYDROCHLOROTHIAZIDE. [Concomitant]
     Active Substance: HYDROCHLOROTHIAZIDE
     Dosage: 25 MG, UNK
  4. ASPIRIN                            /00002701/ [Concomitant]
     Active Substance: ASPIRIN
     Dosage: 100 MG, QD
  5. OMNIPAQUE [Suspect]
     Active Substance: IOHEXOL
     Indication: ANGINA PECTORIS
     Dosage: 250 ML, SINGLE
     Route: 013

REACTIONS (3)
  - Encephalopathy [Recovered/Resolved]
  - Hyponatraemia [Recovered/Resolved]
  - Presyncope [Recovered/Resolved]
